FAERS Safety Report 6506262-9 (Version None)
Quarter: 2009Q4

REPORT INFORMATION
  Report Type: 
  Country: None (occurrence: None)
  Receive Date: 20091216
  Receipt Date: 20091201
  Transmission Date: 20100525
  Serious: Yes (Death)
  Sender: FDA-Public Use
  Company Number: 2009003675

PATIENT
  Age: 47 Year
  Sex: Female

DRUGS (2)
  1. ERLOTINIB HYDROCHLORIDE [Suspect]
     Indication: HEPATIC NEOPLASM MALIGNANT
     Dosage: (150 MG),ORAL
     Route: 048
     Dates: start: 20091113, end: 20091101
  2. SORAFENIB [Suspect]
     Indication: HEPATIC NEOPLASM MALIGNANT
     Dosage: (800 MG,QD),ORAL
     Route: 048
     Dates: start: 20091113, end: 20091101

REACTIONS (1)
  - DEATH [None]
